FAERS Safety Report 8833212 (Version 1)
Quarter: 2012Q4

REPORT INFORMATION
  Report Type: 
  Country: MX (occurrence: MX)
  Receive Date: 20121010
  Receipt Date: 20121010
  Transmission Date: 20130627
  Serious: Yes (Death, Hospitalization)
  Sender: FDA-Public Use
  Company Number: PHHY2012MX089000

PATIENT
  Age: 71 Year
  Sex: Male

DRUGS (1)
  1. EXFORGE [Suspect]
     Indication: HYPERTENSION
     Dosage: 1 tablet daily
     Dates: start: 20090921

REACTIONS (4)
  - Respiratory failure [Fatal]
  - Dyspnoea [Fatal]
  - Cardiac failure [Unknown]
  - Renal failure [Unknown]
